FAERS Safety Report 9120938 (Version 2)
Quarter: 2013Q2

REPORT INFORMATION
  Report Type: Report from Study
  Country: GB (occurrence: GB)
  Receive Date: 20130226
  Receipt Date: 20130428
  Transmission Date: 20140414
  Serious: Yes (Death)
  Sender: FDA-Public Use
  Company Number: GB-ROCHE-1193630

PATIENT
  Age: 67 Year
  Sex: Female

DRUGS (2)
  1. TOCILIZUMAB [Suspect]
     Indication: RHEUMATOID ARTHRITIS
     Route: 065
     Dates: start: 20110125
  2. METHOTREXATE [Concomitant]

REACTIONS (2)
  - Bronchopneumonia [Fatal]
  - Lung cancer metastatic [Fatal]
